FAERS Safety Report 18489249 (Version 1)
Quarter: 2020Q4

REPORT INFORMATION
  Report Type: Spontaneous
  Country: CA (occurrence: CA)
  Receive Date: 20201111
  Receipt Date: 20201111
  Transmission Date: 20210114
  Serious: Yes (Other)
  Sender: FDA-Public Use
  Company Number: CA-JNJFOC-20201105489

PATIENT
  Age: 29 Year
  Sex: Male
  Weight: 87 kg

DRUGS (7)
  1. INFLIXIMAB, RECOMBINANT [Suspect]
     Active Substance: INFLIXIMAB
     Indication: COLITIS ULCERATIVE
     Route: 042
  2. NUTRIENTS NOS [Concomitant]
     Active Substance: UNSPECIFIED INGREDIENT
     Route: 065
  3. REMERON [Concomitant]
     Active Substance: MIRTAZAPINE
     Route: 065
  4. METHADONE [Concomitant]
     Active Substance: METHADONE HYDROCHLORIDE
     Route: 065
  5. MELATONIN [Concomitant]
     Active Substance: MELATONIN
     Route: 065
  6. ASACOL [Concomitant]
     Active Substance: MESALAMINE
     Dosage: TABLET (ENTERIC COATED)
     Route: 048
  7. PANTOLOC                           /01263201/ [Concomitant]
     Active Substance: PANTOPRAZOLE SODIUM
     Route: 065

REACTIONS (3)
  - Psoriasis [Unknown]
  - Weight decreased [Unknown]
  - Incorrect dose administered [Unknown]
